FAERS Safety Report 7076770-3 (Version None)
Quarter: 2010Q4

REPORT INFORMATION
  Report Type: 
  Country: None (occurrence: None)
  Receive Date: 20101022
  Receipt Date: 20101014
  Transmission Date: 20110411
  Serious: Yes (Death, Hospitalization, Other)
  Sender: FDA-Public Use
  Company Number: 2009AC000153

PATIENT
  Age: 55 Year
  Sex: Male
  Weight: 97.5234 kg

DRUGS (61)
  1. DIGOXIN [Suspect]
     Dosage: 0.25 MG; QD; PO
     Route: 048
  2. HYDROCODONE [Concomitant]
  3. PROMETHAZINE [Concomitant]
  4. CLOBETASOL PROPIONATE [Concomitant]
  5. AMOXICILLIN [Concomitant]
  6. PROPOXYPHENE HYDROCHLORIDE [Concomitant]
  7. GLIPIZIDE [Concomitant]
  8. FUROSEMIDE [Concomitant]
  9. PREDNISONE [Concomitant]
  10. HYDROCHLOROTHIAZIDE [Concomitant]
  11. OMEPRAZOLE [Concomitant]
  12. BACTROBAN [Concomitant]
  13. PLAVIX [Concomitant]
  14. ISOSORBIDE DINITRATE [Concomitant]
  15. FERROUS SULFATE [Concomitant]
  16. GLYBURIDE [Concomitant]
  17. ACETAMINOPHEN [Concomitant]
  18. LEVETIRACETAM [Concomitant]
  19. HYDRALAZINE [Concomitant]
  20. CITALOPRAM [Concomitant]
  21. AZITHROMYCIN [Concomitant]
  22. ELIDEL [Concomitant]
  23. LEVAQUIN [Concomitant]
  24. SIMVASTATIN [Concomitant]
  25. RANITIDINE [Concomitant]
  26. WARFARIN [Concomitant]
  27. PAROXETINE HCL [Concomitant]
  28. POTSSIUM [Concomitant]
  29. COREG [Concomitant]
  30. IMDUR [Concomitant]
  31. MULTI-VITAMIN [Concomitant]
  32. LEVETIRACETAM [Concomitant]
  33. TEMOVATE GEL [Concomitant]
  34. PLAQUENIL [Concomitant]
  35. PAXIL [Concomitant]
  36. CELEXA [Concomitant]
  37. ASPIRIN [Concomitant]
  38. FOLIC ACID [Concomitant]
  39. FUROSEMIDE [Concomitant]
  40. DIOVAN [Concomitant]
  41. VITAMIN B-12 [Concomitant]
  42. FOLIC ACID [Concomitant]
  43. DYNACIRC [Concomitant]
  44. PROVIGIL [Concomitant]
  45. DILAUDID [Concomitant]
  46. COUMADIN [Concomitant]
  47. PAXIL [Concomitant]
  48. PLAVIX [Concomitant]
  49. ZANTAC [Concomitant]
  50. ZOCOR [Concomitant]
  51. DYNACIRC [Concomitant]
  52. HYDRALAZINE [Concomitant]
  53. IMDUR [Concomitant]
  54. FUROSEMIDE [Concomitant]
  55. COREG [Concomitant]
  56. ISOSORBIDE DINITRATE [Concomitant]
  57. VITAMIN B [Concomitant]
  58. MULTI-VITAMIN [Concomitant]
  59. POTASSIUM CHLORIDE [Concomitant]
  60. PAXIL [Concomitant]
  61. MICRONASE [Concomitant]

REACTIONS (50)
  - ADHESION [None]
  - ANAEMIA [None]
  - ATRIOVENTRICULAR BLOCK FIRST DEGREE [None]
  - CARDIAC FAILURE CONGESTIVE [None]
  - CAROTID ARTERY STENOSIS [None]
  - CATARACT [None]
  - CEREBRAL HAEMORRHAGE [None]
  - CEREBROVASCULAR ACCIDENT [None]
  - CONVULSION [None]
  - CUTANEOUS SARCOIDOSIS [None]
  - DEEP VEIN THROMBOSIS [None]
  - DEPRESSION [None]
  - DYSARTHRIA [None]
  - ELECTROCARDIOGRAM T WAVE INVERSION [None]
  - ERECTILE DYSFUNCTION [None]
  - FAILURE TO THRIVE [None]
  - GASTROINTESTINAL STOMA COMPLICATION [None]
  - GYNAECOMASTIA [None]
  - HAEMOPTYSIS [None]
  - HEADACHE [None]
  - HYPERTENSION [None]
  - HYPOGLYCAEMIA [None]
  - ISCHAEMIC CARDIOMYOPATHY [None]
  - ISCHAEMIC STROKE [None]
  - LETHARGY [None]
  - MALNUTRITION [None]
  - MITRAL VALVE INCOMPETENCE [None]
  - MOOD ALTERED [None]
  - MULTIPLE INJURIES [None]
  - MYOCARDIAL INFARCTION [None]
  - PANCREATITIS [None]
  - PROSTATISM [None]
  - PULMONARY HYPERTENSION [None]
  - PULMONARY OEDEMA [None]
  - QRS AXIS ABNORMAL [None]
  - RENAL CYST [None]
  - RENAL FAILURE ACUTE [None]
  - RENAL FAILURE CHRONIC [None]
  - RETCHING [None]
  - SLEEP APNOEA SYNDROME [None]
  - SOMNOLENCE [None]
  - THERAPEUTIC AGENT TOXICITY [None]
  - TREATMENT NONCOMPLIANCE [None]
  - TRICUSPID VALVE INCOMPETENCE [None]
  - URINARY RETENTION [None]
  - VENTRICULAR EXTRASYSTOLES [None]
  - VISUAL ACUITY REDUCED [None]
  - VISUAL FIELD DEFECT [None]
  - WEIGHT DECREASED [None]
  - WEIGHT INCREASED [None]
